FAERS Safety Report 13283805 (Version 1)
Quarter: 2017Q1

REPORT INFORMATION
  Report Type: Spontaneous
  Country: US (occurrence: US)
  Receive Date: 20170301
  Receipt Date: 20170301
  Transmission Date: 20170428
  Serious: No
  Sender: FDA-Public Use
  Company Number: US-INSYS THERAPEUTICS, INC-INS201605-000200

PATIENT
  Sex: Male

DRUGS (3)
  1. SUBSYS [Suspect]
     Active Substance: FENTANYL
     Indication: RADICULOPATHY
  2. OXYMORPHONE [Concomitant]
     Active Substance: OXYMORPHONE
  3. SUBSYS [Suspect]
     Active Substance: FENTANYL
     Indication: ARTHRALGIA
     Route: 060
     Dates: start: 20151020

REACTIONS (2)
  - Feeling abnormal [Unknown]
  - Product quality issue [Unknown]
